FAERS Safety Report 5468145-5 (Version None)
Quarter: 2007Q3

REPORT INFORMATION
  Report Type: 
  Country: None (occurrence: None)
  Receive Date: 20070924
  Receipt Date: 20070912
  Transmission Date: 20080115
  Serious: Yes (Hospitalization, Other)
  Sender: FDA-Public Use
  Company Number: 2007001755

PATIENT
  Sex: Female

DRUGS (1)
  1. MACUGEN [Suspect]
     Dosage: INTRA-VITREAL

REACTIONS (2)
  - HYPERSENSITIVITY [None]
  - RETINAL HAEMORRHAGE [None]
